FAERS Safety Report 4944957-9 (Version None)
Quarter: 2006Q1

REPORT INFORMATION
  Report Type: 
  Country: None (occurrence: None)
  Receive Date: 20060117
  Receipt Date: 20050603
  Transmission Date: 20060701
  Serious: Yes (Death)
  Sender: FDA-Public Use
  Company Number: A03200501710

PATIENT
  Sex: Male

DRUGS (4)
  1. PLAVIX [Suspect]
     Dosage: ORAL
     Route: 048
  2. ASPIRIN [Suspect]
     Dosage: ORAL
     Route: 048
  3. HEPARIN - SOLUTION - UNIT DOSE [Suspect]
     Dosage: INTRAVENOUS NOS
     Route: 042
  4. INTEGRILIN [Suspect]
     Dosage: 180 UG/KG IV BOLUS FOLLOWED  BY 1 UG/KG/MIN
     Route: 042

REACTIONS (2)
  - GASTROINTESTINAL HAEMORRHAGE [None]
  - HAEMATEMESIS [None]
